FAERS Safety Report 5633817-6 (Version None)
Quarter: 2008Q1

REPORT INFORMATION
  Report Type: 
  Country: None (occurrence: None)
  Receive Date: 20080219
  Receipt Date: 20080201
  Transmission Date: 20080703
  Serious: Yes (Hospitalization)
  Sender: FDA-Public Use
  Company Number: DSA_31357_2008

PATIENT
  Age: 80 Year
  Sex: Female

DRUGS (9)
  1. LORAZEPAM [Suspect]
     Indication: ANXIETY
     Dosage: (6 MG TID ORAL), (3 MG QD ORAL)
     Route: 048
     Dates: start: 20071020, end: 20071105
  2. LORAZEPAM [Suspect]
     Indication: ANXIETY
     Dosage: (6 MG TID ORAL), (3 MG QD ORAL)
     Route: 048
     Dates: start: 20071106, end: 20071128
  3. LORAZEPAM [Suspect]
     Indication: ANXIETY
     Dosage: (10 MG BID ORAL)
     Route: 048
     Dates: start: 20070801, end: 20071020
  4. INSULIN NOVOMIX /02607201/ [Concomitant]
  5. DEXNON /00068002/ [Concomitant]
  6. SIMVASTATIN [Concomitant]
  7. ADIRO [Concomitant]
  8. CALCIUM-SANDOZ F [Concomitant]
  9. EFFERALGAN /00020001 [Concomitant]

REACTIONS (3)
  - CONFUSIONAL STATE [None]
  - HYPOPARATHYROIDISM SECONDARY [None]
  - INAPPROPRIATE ANTIDIURETIC HORMONE SECRETION [None]
